FAERS Safety Report 7583816-2 (Version None)
Quarter: 2011Q2

REPORT INFORMATION
  Report Type: 
  Country: None (occurrence: None)
  Receive Date: 20110630
  Receipt Date: 20110620
  Transmission Date: 20111010
  Serious: Yes (Other)
  Sender: FDA-Public Use
  Company Number: ES-ROCHE-785072

PATIENT
  Age: 64 Year
  Sex: Male
  Weight: 66 kg

DRUGS (10)
  1. CEMIDON [Concomitant]
     Indication: LATENT TUBERCULOSIS
     Route: 048
     Dates: start: 20100910
  2. METHOTREXATE [Concomitant]
     Indication: RHEUMATOID ARTHRITIS
     Dosage: FREQUENCY: WEEKLY
     Route: 058
  3. FERROUS SULFATE TAB [Concomitant]
     Dosage: DOSE: 1FIXED DOSE
     Route: 042
  4. ACTEMRA [Suspect]
     Indication: RHEUMATOID ARTHRITIS
     Dosage: FREQUENCY: MONTHLY
     Route: 042
     Dates: start: 20101104, end: 20110328
  5. PLUSVENT [Concomitant]
     Dosage: DOSE: 25/250 MG
     Route: 055
  6. COTRIM [Concomitant]
     Route: 065
  7. DACORTIN [Concomitant]
     Route: 065
  8. LEDERFOLIN [Concomitant]
     Route: 048
  9. FOSAVANCE [Concomitant]
     Dosage: FREQUENCY: WEEKLY
     Route: 065
  10. OMEPRAZOLE [Concomitant]
     Route: 065

REACTIONS (5)
  - SINUS TACHYCARDIA [None]
  - DILATATION VENTRICULAR [None]
  - VENTRICULAR DYSFUNCTION [None]
  - HYPOKINESIA [None]
  - LYMPHOPENIA [None]
